FAERS Safety Report 8506777-8 (Version None)
Quarter: 2012Q3

REPORT INFORMATION
  Report Type: 
  Country: None (occurrence: None)
  Receive Date: 20120712
  Receipt Date: 20120709
  Transmission Date: 20120928
  Serious: No
  Sender: FDA-Public Use
  Company Number: US-PFIZER INC-2012164331

PATIENT
  Sex: Male
  Weight: 111.11 kg

DRUGS (3)
  1. VIAGRA [Suspect]
     Indication: ERECTILE DYSFUNCTION
     Dosage: 100 MG, AS NEEDED
     Route: 048
     Dates: start: 20101001, end: 20120501
  2. ZYPREXA [Concomitant]
     Indication: BIPOLAR DISORDER
  3. ZYPREXA [Concomitant]
     Indication: DEPRESSION
     Dosage: 15 MG, 1X/DAY

REACTIONS (1)
  - DRUG INEFFECTIVE [None]
